FAERS Safety Report 9282866 (Version 1)
Quarter: 2013Q2

REPORT INFORMATION
  Report Type: Spontaneous
  Country: US (occurrence: US)
  Receive Date: 20130510
  Receipt Date: 20130510
  Transmission Date: 20140414
  Serious: Yes (Other)
  Sender: FDA-Public Use
  Company Number: US-PERRIGO-13US004802

PATIENT
  Sex: Female

DRUGS (1)
  1. DOXYLAMINE SUCCINATE 25 MG 441 [Suspect]
     Indication: INTENTIONAL OVERDOSE
     Dosage: 625 MG, TWICE, 4 HOURS APART
     Route: 048
     Dates: start: 201302, end: 201302

REACTIONS (3)
  - Intentional overdose [Not Recovered/Not Resolved]
  - Vision blurred [Not Recovered/Not Resolved]
  - Anxiety [None]
